FAERS Safety Report 4347093-8 (Version None)
Quarter: 2004Q1

REPORT INFORMATION
  Report Type: 
  Country: None (occurrence: None)
  Receive Date: 20040325
  Receipt Date: 20031217
  Transmission Date: 20041129
  Serious: No
  Sender: FDA-Public Use
  Company Number: USA031254993

PATIENT
  Age: 74 Year
  Sex: Female

DRUGS (5)
  1. FORTEO [Suspect]
     Indication: OSTEOPOROSIS
     Dates: start: 20030523
  2. EVISTA [Suspect]
     Indication: OSTEOPOROSIS
     Dates: start: 20010601, end: 20011001
  3. PREMARIN [Concomitant]
  4. FOSAMAX [Concomitant]
  5. ACTONEL [Concomitant]

REACTIONS (2)
  - EYE PAIN [None]
  - INJECTION SITE PAIN [None]
